FAERS Safety Report 24879067 (Version 1)
Quarter: 2025Q1

REPORT INFORMATION
  Report Type: Spontaneous
  Country: US (occurrence: US)
  Receive Date: 20250123
  Receipt Date: 20250123
  Transmission Date: 20250408
  Serious: No
  Sender: CATALYST PHARMA
  Company Number: US-CATALYST PHARMACEUTICALS, INC-US-CATA-24-00497

PATIENT
  Age: 70 Year
  Sex: Female
  Weight: 72.562 kg

DRUGS (8)
  1. FIRDAPSE [Suspect]
     Active Substance: AMIFAMPRIDINE PHOSPHATE
     Indication: Myasthenic syndrome
     Dosage: 1 TABLET BY MOUTH THREE TIMES A DAY
     Route: 048
     Dates: start: 20240110, end: 2024
  2. FIRDAPSE [Suspect]
     Active Substance: AMIFAMPRIDINE PHOSPHATE
     Dosage: 2 TABLETS BY MOUTH THREE TIMES A DAY
     Route: 048
     Dates: start: 20240315
  3. AMLODIPINE [Concomitant]
     Active Substance: AMLODIPINE BESYLATE
     Indication: Product used for unknown indication
     Dosage: 5 MG DAILY
     Route: 065
  4. CREON [Concomitant]
     Active Substance: PANCRELIPASE AMYLASE\PANCRELIPASE LIPASE\PANCRELIPASE PROTEASE
     Indication: Product used for unknown indication
     Route: 048
  5. ESOMEPRAZOLE [Concomitant]
     Active Substance: ESOMEPRAZOLE
     Indication: Product used for unknown indication
     Route: 065
  6. FERROUS SULFATE [Concomitant]
     Active Substance: FERROUS SULFATE
     Indication: Product used for unknown indication
     Dosage: 325 MG DAILY
     Route: 065
  7. ASPIRIN [Concomitant]
     Active Substance: ASPIRIN
     Indication: Product used for unknown indication
     Dosage: 81 MG DAILY
     Route: 065
  8. DOCUSATE [Concomitant]
     Active Substance: DOCUSATE
     Indication: Product used for unknown indication
     Dosage: 100 MG THREE TIMES A DAY
     Route: 065

REACTIONS (1)
  - Pain in extremity [Not Recovered/Not Resolved]

NARRATIVE: CASE EVENT DATE: 20240501
